FAERS Safety Report 9155762 (Version 3)
Quarter: 2013Q2

REPORT INFORMATION
  Report Type: Spontaneous
  Country: JP (occurrence: JP)
  Receive Date: 20130311
  Receipt Date: 20130401
  Transmission Date: 20140414
  Serious: Yes (Death)
  Sender: FDA-Public Use
  Company Number: JP-B.I. PHARMACEUTICALS,INC./RIDGEFIELD-2013-BI-06233NB

PATIENT
  Age: 80 Year
  Sex: Male
  Weight: 62.4 kg

DRUGS (8)
  1. PRADAXA [Suspect]
     Indication: ATRIAL FIBRILLATION
     Dosage: 220 MG
     Route: 048
     Dates: start: 20111104, end: 20120219
  2. LUPRAC [Concomitant]
     Indication: CARDIAC FAILURE
     Dosage: 4 MG
     Route: 048
     Dates: start: 20120524
  3. NU-LOTAN [Concomitant]
     Indication: HYPERTENSION
     Dosage: 25 MG
     Route: 048
     Dates: start: 20130207
  4. MAINTATE [Concomitant]
     Indication: ATRIAL FIBRILLATION
     Dosage: 5 MG
     Route: 048
     Dates: start: 20130207
  5. TAKEPRON [Concomitant]
     Indication: PROPHYLAXIS AGAINST GASTROINTESTINAL ULCER
     Dosage: 15 MG
     Route: 048
     Dates: start: 20120131
  6. ALOSITOL [Concomitant]
     Indication: HYPERURICAEMIA
     Dosage: 100 MG
     Route: 048
     Dates: start: 20120405
  7. OPALMON [Concomitant]
     Indication: PERIPHERAL VASCULAR DISORDER
     Dosage: 30 MCG
     Route: 048
     Dates: start: 20111125
  8. SOTACOR [Concomitant]
     Indication: ATRIAL FIBRILLATION
     Dosage: 80 MG
     Route: 048
     Dates: start: 20130215

REACTIONS (2)
  - Cerebral infarction [Fatal]
  - Cardiac arrest [Fatal]
